FAERS Safety Report 6800679-0 (Version None)
Quarter: 2010Q2

REPORT INFORMATION
  Report Type: 
  Country: None (occurrence: None)
  Receive Date: 20100629
  Receipt Date: 20100622
  Transmission Date: 20101027
  Serious: Yes (Other)
  Sender: FDA-Public Use
  Company Number: PHHO2006US16684

PATIENT
  Sex: Female
  Weight: 57.641 kg

DRUGS (16)
  1. CERTICAN [Suspect]
     Indication: RENAL TRANSPLANT
     Dosage: 1.25 MG, BID
     Route: 048
     Dates: start: 20041209
  2. NEORAL [Suspect]
     Indication: RENAL TRANSPLANT
     Dosage: 50 MG/DAY
     Route: 048
     Dates: start: 20040318
  3. DELTASONE [Concomitant]
     Indication: RENAL TRANSPLANT
     Dosage: UNK, UNK
     Dates: start: 20020825
  4. AMLODIPINE BESYLATE [Concomitant]
  5. ATENOLOL [Concomitant]
  6. FUROSEMIDE [Concomitant]
  7. LISINOPRIL [Concomitant]
  8. BACTRIM [Concomitant]
  9. GLYBURIDE [Concomitant]
  10. ROSIGLITAZONE [Concomitant]
  11. ATORVASTATIN CALCIUM [Concomitant]
  12. CALCIUM CARBONATE [Concomitant]
  13. LOVAZA [Concomitant]
  14. POTASSIUM CHLORIDE [Concomitant]
  15. ASPIRIN [Concomitant]
  16. FERROUS SULFATE TAB [Concomitant]

REACTIONS (4)
  - HYPERKERATOSIS [None]
  - MALIGNANT TUMOUR EXCISION [None]
  - MICROGRAPHIC SKIN SURGERY [None]
  - SQUAMOUS CELL CARCINOMA OF SKIN [None]
